FAERS Safety Report 4807780-1 (Version None)
Quarter: 2005Q4

REPORT INFORMATION
  Report Type: 
  Country: None (occurrence: None)
  Receive Date: 20051020
  Receipt Date: 20051008
  Transmission Date: 20060501
  Serious: Yes (Other)
  Sender: FDA-Public Use
  Company Number: 2005138828

PATIENT
  Age: 14 Year
  Sex: Male
  Weight: 45.3597 kg

DRUGS (2)
  1. BENADRYL [Suspect]
     Indication: SINUS CONGESTION
     Dosage: 2 TABS DAILY ORAL
     Route: 048
     Dates: start: 20051006, end: 20051007
  2. MULTIVITAMINS (ASCORBIC ACID, ERGOCALCIFEROL, FOLIC ACID, NICOTINAMIDE [Concomitant]

REACTIONS (9)
  - ERYTHEMA [None]
  - FALL [None]
  - HEADACHE [None]
  - INFLAMMATION [None]
  - LOSS OF CONSCIOUSNESS [None]
  - PRURITUS [None]
  - SOMNOLENCE [None]
  - SWELLING [None]
  - URTICARIA [None]
